FAERS Safety Report 8125930-9 (Version None)
Quarter: 2012Q1

REPORT INFORMATION
  Report Type: 
  Country: None (occurrence: None)
  Receive Date: 20120209
  Receipt Date: 20120131
  Transmission Date: 20120608
  Serious: Yes (Death, Hospitalization)
  Sender: FDA-Public Use
  Company Number: NL-ROCHE-1028041

PATIENT
  Age: 54 Year
  Sex: Male
  Weight: 110 kg

DRUGS (2)
  1. VEMURAFENIB [Suspect]
     Indication: METASTATIC MALIGNANT MELANOMA
     Dosage: DATE OF LAST DOSE PRIOR TO SAE (DISSEMINATED INTRAVASCULAR COAGULATION): 04/JAN/2012
     Route: 048
     Dates: start: 20111129, end: 20120104
  2. VEMURAFENIB [Suspect]
     Route: 048
     Dates: start: 20120112, end: 20120113

REACTIONS (2)
  - DISSEMINATED INTRAVASCULAR COAGULATION [None]
  - CEREBRAL HAEMORRHAGE [None]
